FAERS Safety Report 5892587-7 (Version None)
Quarter: 2008Q3

REPORT INFORMATION
  Report Type: 
  Country: None (occurrence: None)
  Receive Date: 20080923
  Receipt Date: 20080912
  Transmission Date: 20090109
  Serious: Yes (Hospitalization)
  Sender: FDA-Public Use
  Company Number: GB-ROCHE-586140

PATIENT
  Sex: Female
  Weight: 98 kg

DRUGS (12)
  1. ORLISTAT [Suspect]
     Indication: OBESITY
     Route: 048
     Dates: start: 20080529
  2. SIMVASTATIN [Concomitant]
     Dosage: START DATE: EARLY 2007
     Route: 048
     Dates: start: 20070201
  3. FRUSEMIDE [Concomitant]
     Indication: HYPERTENSION
     Dosage: START DATE: EARLY 2007
     Route: 048
     Dates: start: 20070201
  4. OMEPRAZOLE [Concomitant]
     Dosage: START DATE: EARLY 2007
     Route: 048
     Dates: start: 20070201
  5. DILTIAZEM HCL [Concomitant]
     Indication: ANGINA PECTORIS
     Route: 046
     Dates: start: 20080812
  6. DILTIAZEM HCL [Concomitant]
     Route: 046
     Dates: start: 20080703, end: 20080812
  7. SPIRIVA [Concomitant]
     Indication: ASTHMA
     Dosage: ALSO INDICATED FOR COPD
     Route: 055
  8. SERETIDE [Concomitant]
     Indication: ASTHMA
     Dosage: DOSING: 2X125MCG PUFFS 2X DAILY.  ALSO INDICATED FOR COPD
     Route: 055
     Dates: start: 20040101
  9. VENTOLIN [Concomitant]
     Indication: ASTHMA
     Route: 055
     Dates: start: 20040101
  10. ASPIRIN [Concomitant]
     Indication: THROMBOSIS PROPHYLAXIS
     Route: 048
     Dates: start: 20070101
  11. CO-DYDRAMOL [Concomitant]
     Indication: ANALGESIA
     Dosage: DOSING: 8X10/500MG DAILY
     Route: 048
  12. NITROGLYCERIN [Concomitant]
     Indication: ANGINA PECTORIS
     Dosage: THIS IS USED RARELY
     Route: 060

REACTIONS (2)
  - BLOOD PRESSURE INCREASED [None]
  - FALL [None]
